FAERS Safety Report 6934457-9 (Version None)
Quarter: 2010Q3

REPORT INFORMATION
  Report Type: 
  Country: None (occurrence: None)
  Receive Date: 20100820
  Receipt Date: 20100816
  Transmission Date: 20110219
  Serious: Yes (Other)
  Sender: FDA-Public Use
  Company Number: US-ALLERGAN-1009907US

PATIENT
  Age: 71 Year
  Sex: Female

DRUGS (2)
  1. REFRESH PLUS [Suspect]
     Indication: DRY EYE
     Dosage: 1 GTT, QHS
     Route: 047
     Dates: start: 20090424, end: 20090424
  2. REFRESH PLUS [Suspect]
     Dosage: 1 GTT, QHS
     Route: 047

REACTIONS (3)
  - CORNEAL ABRASION [None]
  - EYE INJURY [None]
  - EYE PAIN [None]
